FAERS Safety Report 17616784 (Version 1)
Quarter: 2020Q1

REPORT INFORMATION
  Report Type: Spontaneous
  Country: US (occurrence: US)
  Receive Date: 20200331
  Receipt Date: 20200331
  Transmission Date: 20200409
  Serious: Yes (Hospitalization)
  Sender: FDA-Public Use
  Company Number: None

PATIENT
  Age: 62 Year
  Sex: Male

DRUGS (1)
  1. TEMOZOLOMIDE CAP 20MG 1X5 [Suspect]
     Active Substance: TEMOZOLOMIDE
     Route: 048
     Dates: start: 20190918

REACTIONS (2)
  - Therapy cessation [None]
  - Pulmonary thrombosis [None]

NARRATIVE: CASE EVENT DATE: 20200324
